FAERS Safety Report 10362815 (Version 1)
Quarter: 2014Q1

REPORT INFORMATION
  Report Type: Spontaneous
  Country: US (occurrence: None)
  Receive Date: 20140306
  Receipt Date: 20140306
  Transmission Date: 20141002
  Serious: Yes (Other)
  Sender: FDA-Public Use
  Company Number: 163-21880-13031506

PATIENT
  Age: 83 Year
  Sex: Female
  Weight: 44.91 kg

DRUGS (1)
  1. REVLIMID (LENALIDOMIDE) (CAPSULES) [Suspect]
     Indication: PLASMA CELL MYELOMA
     Route: 048
     Dates: start: 20120922, end: 20130209

REACTIONS (4)
  - Pelvic fracture [None]
  - Fall [None]
  - Mental status changes [None]
  - Weight decreased [None]
